FAERS Safety Report 6186182-2 (Version None)
Quarter: 2009Q2

REPORT INFORMATION
  Report Type: 
  Country: None (occurrence: None)
  Receive Date: 20090511
  Receipt Date: 20090429
  Transmission Date: 20091009
  Serious: Yes (Other)
  Sender: FDA-Public Use
  Company Number: DZ-PFIZER INC-2009206094

PATIENT
  Age: 57 Year

DRUGS (3)
  1. PREGABALIN [Suspect]
     Indication: NEURALGIA
     Dosage: 100 MG, 3X/DAY
     Route: 048
  2. LANTUS [Concomitant]
     Dosage: 40 UNK, UNK
     Route: 048
  3. ASPEGIC 1000 [Concomitant]
     Dosage: 100 MG, UNK
     Route: 048

REACTIONS (1)
  - HYPERGLYCAEMIA [None]
